FAERS Safety Report 12984422 (Version 1)
Quarter: 2016Q4

REPORT INFORMATION
  Report Type: Spontaneous
  Country: JP (occurrence: JP)
  Receive Date: 20161129
  Receipt Date: 20161129
  Transmission Date: 20170207
  Serious: Yes (Hospitalization)
  Sender: FDA-Public Use
  Company Number: JP-ABBVIE-16P-087-1783505-00

PATIENT
  Age: 11 Year
  Sex: Male
  Weight: 35 kg

DRUGS (10)
  1. ISOZOL [Concomitant]
     Active Substance: THIAMYLAL SODIUM
     Indication: INDUCTION OF ANAESTHESIA
     Route: 042
     Dates: start: 20151218, end: 20151218
  2. ESLAX [Concomitant]
     Active Substance: ROCURONIUM BROMIDE
     Indication: HYPOTONIA
     Dosage: 25 MG, 10 MG, 7 MG
     Route: 042
     Dates: start: 20151218, end: 20151218
  3. XYLOCAINE [Concomitant]
     Active Substance: LIDOCAINE HYDROCHLORIDE
     Indication: ANALGESIC THERAPY
     Dosage: 6 ML, 1.3 ML, 1.4 ML
     Route: 058
     Dates: start: 20151218, end: 20151218
  4. FLUMARIN [Concomitant]
     Active Substance: FLOMOXEF SODIUM
     Indication: INFECTION PROPHYLAXIS
     Route: 042
     Dates: start: 20151218, end: 20151218
  5. ULTIVA [Concomitant]
     Active Substance: REMIFENTANIL HYDROCHLORIDE
     Indication: ANALGESIC THERAPY
     Route: 042
     Dates: start: 20151218, end: 20151218
  6. ACELIO [Concomitant]
     Active Substance: ACETAMINOPHEN
     Indication: ANALGESIC THERAPY
     Route: 042
     Dates: start: 20151218, end: 20151218
  7. BRIDION [Concomitant]
     Active Substance: SUGAMMADEX
     Indication: NEUROMUSCULAR BLOCKADE REVERSAL
     Route: 042
     Dates: start: 20151218, end: 20151218
  8. FENTANYL CITRATE. [Concomitant]
     Active Substance: FENTANYL CITRATE
     Indication: MAINTENANCE OF ANAESTHESIA
     Route: 065
     Dates: start: 20151218, end: 20151218
  9. SEVOFRANE [Suspect]
     Active Substance: SEVOFLURANE
     Indication: INDUCTION AND MAINTENANCE OF ANAESTHESIA
     Dosage: 1.5-3%
     Route: 055
     Dates: start: 20151218, end: 20151218
  10. DECADRON [Concomitant]
     Active Substance: DEXAMETHASONE
     Indication: ANTIINFLAMMATORY THERAPY
     Route: 042
     Dates: start: 20151218, end: 20151218

REACTIONS (6)
  - Rhabdomyolysis [Recovered/Resolved]
  - Chills [Recovered/Resolved]
  - Tachycardia [Recovered/Resolved]
  - Hyperthermia malignant [Recovered/Resolved]
  - Hyperventilation [Recovered/Resolved]
  - Trismus [Recovered/Resolved]

NARRATIVE: CASE EVENT DATE: 20151218
